FAERS Safety Report 4883003-2 (Version None)
Quarter: 2006Q1

REPORT INFORMATION
  Report Type: 
  Country: None (occurrence: None)
  Receive Date: 20060113
  Receipt Date: 20051222
  Transmission Date: 20060701
  Serious: Yes (Other)
  Sender: FDA-Public Use
  Company Number: IE200512003878

PATIENT
  Age: 66 Year
  Sex: Female

DRUGS (7)
  1. EVISTA [Suspect]
     Indication: OSTEOPOROSIS
     Dosage: 60 MG, UNK, ORAL
     Route: 048
     Dates: start: 20000111, end: 20051101
  2. ODRIK (TRANDOLAPRIL) [Concomitant]
  3. DONA 200-S - SLOW RELEASE (GLUCOSAMINE SULFATE) [Concomitant]
  4. ARTHROTEC [Concomitant]
  5. ACETAMINOPHEN [Concomitant]
  6. COD-LIVER OIL (COD-LIVER OIL) [Concomitant]
  7. OMEGA-3 (OMEGA-3 TRIGLYCERIDES) [Concomitant]

REACTIONS (1)
  - FIBROMYALGIA [None]
